FAERS Safety Report 6936812-X (Version None)
Quarter: 2010Q3

REPORT INFORMATION
  Report Type: 
  Country: None (occurrence: None)
  Receive Date: 20100823
  Receipt Date: 20100812
  Transmission Date: 20110219
  Serious: Yes (Other)
  Sender: FDA-Public Use
  Company Number: FR-WYE-H16927410

PATIENT
  Age: 57 Year
  Sex: Male

DRUGS (4)
  1. PANTOPRAZOLE SODIUM [Suspect]
     Indication: DYSPEPSIA
     Dosage: 40 MG, FREQUENCY UNSPECIFIED
     Route: 042
     Dates: start: 20100806, end: 20100809
  2. SOLU-MEDROL [Concomitant]
     Dosage: UNKNOWN
     Route: 042
  3. MORPHINE [Concomitant]
     Dosage: UNKNOWN
     Route: 042
  4. PERFALGAN [Concomitant]
     Dosage: UNKNOWN
     Route: 042

REACTIONS (2)
  - INJECTION SITE PAIN [None]
  - PERIPHLEBITIS [None]
